FAERS Safety Report 10263829 (Version 2)
Quarter: 2014Q3

REPORT INFORMATION
  Report Type: Spontaneous
  Country: US (occurrence: US)
  Receive Date: 20140627
  Receipt Date: 20140701
  Transmission Date: 20150326
  Serious: Yes (Death)
  Sender: FDA-Public Use
  Company Number: US-ROCHE-1422433

PATIENT
  Age: 24 Year
  Sex: Female
  Weight: 90.8 kg

DRUGS (10)
  1. DILAUDID [Suspect]
     Active Substance: HYDROMORPHONE HYDROCHLORIDE
     Indication: ABDOMINAL PAIN UPPER
     Route: 065
     Dates: start: 20110225
  2. ZOLOFT [Suspect]
     Active Substance: SERTRALINE HYDROCHLORIDE
     Indication: ABDOMINAL PAIN UPPER
     Route: 065
     Dates: start: 20110225
  3. TORADOL [Suspect]
     Active Substance: KETOROLAC TROMETHAMINE
     Indication: ABDOMINAL PAIN UPPER
     Route: 065
     Dates: start: 20110225
  4. ARIPIPRAZOLE [Suspect]
     Active Substance: ARIPIPRAZOLE
     Indication: ABDOMINAL PAIN UPPER
     Route: 065
     Dates: start: 20110225
  5. LORAZEPAM. [Suspect]
     Active Substance: LORAZEPAM
     Indication: ABDOMINAL PAIN UPPER
     Route: 065
     Dates: start: 20110225
  6. KLONOPIN [Suspect]
     Active Substance: CLONAZEPAM
     Indication: ABDOMINAL PAIN UPPER
     Route: 065
     Dates: start: 20110225
  7. FENTANYL. [Suspect]
     Active Substance: FENTANYL
     Indication: ABDOMINAL PAIN UPPER
     Route: 065
     Dates: start: 20110225
  8. PHENERGAN SUPPOSITORIES [Suspect]
     Active Substance: PROMETHAZINE HYDROCHLORIDE
     Indication: ABDOMINAL PAIN UPPER
     Route: 065
     Dates: start: 20110225
  9. CYMBALTA [Suspect]
     Active Substance: DULOXETINE HYDROCHLORIDE
     Indication: ABDOMINAL PAIN UPPER
     Route: 065
     Dates: start: 20110225
  10. PHENERGAN [Suspect]
     Active Substance: PROMETHAZINE HYDROCHLORIDE
     Indication: ABDOMINAL PAIN UPPER
     Route: 065
     Dates: start: 20110225

REACTIONS (2)
  - Mental disorder [Unknown]
  - Overdose [Fatal]

NARRATIVE: CASE EVENT DATE: 201103
